FAERS Safety Report 18689519 (Version 2)
Quarter: 2021Q1

REPORT INFORMATION
  Report Type: Report from Study
  Country: IE (occurrence: IE)
  Receive Date: 20201231
  Receipt Date: 20210225
  Transmission Date: 20210419
  Serious: Yes (Other)
  Sender: FDA-Public Use
  Company Number: IE-TAKEDA-2020TUS051220

PATIENT
  Age: 58 Year
  Sex: Female

DRUGS (8)
  1. HUMAN IMMUNOGLOBULIN; HYALURONIDASE [Suspect]
     Active Substance: HUMAN IMMUNOGLOBULIN G\HYALURONIDASE RECOMBINANT HUMAN
     Dosage: 19 MILLIGRAM, Q2WEEKS
     Route: 058
     Dates: start: 20201127
  2. HUMAN IMMUNOGLOBULIN; HYALURONIDASE [Suspect]
     Active Substance: HUMAN IMMUNOGLOBULIN G\HYALURONIDASE RECOMBINANT HUMAN
     Dosage: 19 MILLIGRAM, Q2WEEKS
     Route: 058
     Dates: start: 20201113
  3. HUMAN IMMUNOGLOBULIN; HYALURONIDASE [Suspect]
     Active Substance: HUMAN IMMUNOGLOBULIN G\HYALURONIDASE RECOMBINANT HUMAN
     Dosage: 37.5 MILLIGRAM, Q2WEEKS
     Route: 058
     Dates: start: 20201113
  4. HUMAN IMMUNOGLOBULIN; HYALURONIDASE [Suspect]
     Active Substance: HUMAN IMMUNOGLOBULIN G\HYALURONIDASE RECOMBINANT HUMAN
     Dosage: 19 MILLIGRAM, Q2WEEKS
     Route: 058
     Dates: start: 20201113
  5. HUMAN IMMUNOGLOBULIN; HYALURONIDASE [Suspect]
     Active Substance: HUMAN IMMUNOGLOBULIN G\HYALURONIDASE RECOMBINANT HUMAN
     Dosage: 19 MILLIGRAM, Q2WEEKS
     Route: 058
     Dates: start: 20201113
  6. HUMAN IMMUNOGLOBULIN; HYALURONIDASE [Suspect]
     Active Substance: HUMAN IMMUNOGLOBULIN G\HYALURONIDASE RECOMBINANT HUMAN
     Dosage: 37.5  MILLIGRAM, Q2WEEKS
     Route: 058
     Dates: start: 20201113
  7. HUMAN IMMUNOGLOBULIN; HYALURONIDASE [Suspect]
     Active Substance: HUMAN IMMUNOGLOBULIN G\HYALURONIDASE RECOMBINANT HUMAN
     Dosage: 37.5 MILLIGRAM, Q2WEEKS
     Route: 058
     Dates: start: 20201113
  8. HUMAN IMMUNOGLOBULIN; HYALURONIDASE [Suspect]
     Active Substance: HUMAN IMMUNOGLOBULIN G\HYALURONIDASE RECOMBINANT HUMAN
     Indication: PRODUCT USED FOR UNKNOWN INDICATION
     Dosage: 19 MILLIGRAM, Q2WEEKS
     Route: 058
     Dates: start: 20201113

REACTIONS (9)
  - Lower respiratory tract infection [Recovering/Resolving]
  - Infusion site erythema [Recovering/Resolving]
  - Tenderness [Recovering/Resolving]
  - Abdominal pain upper [Recovering/Resolving]
  - Productive cough [Recovering/Resolving]
  - Infusion site swelling [Recovering/Resolving]
  - Infusion site discomfort [Recovered/Resolved]
  - Infusion site pain [Recovered/Resolved]
  - Vomiting [Recovering/Resolving]

NARRATIVE: CASE EVENT DATE: 20201113
